FAERS Safety Report 9123986 (Version 1)
Quarter: 2013Q1

REPORT INFORMATION
  Report Type: Spontaneous
  Country: US (occurrence: US)
  Receive Date: 20130116
  Receipt Date: 20130116
  Transmission Date: 20140127
  Serious: Yes (Other)
  Sender: FDA-Public Use
  Company Number: US-009507513-1301USA003882

PATIENT
  Sex: Female

DRUGS (7)
  1. SINGULAIR [Suspect]
     Indication: ALOPECIA
     Dosage: 10 MG, QD
     Route: 048
  2. SINGULAIR [Suspect]
     Indication: BLOOD PRESSURE ABNORMAL
  3. SINGULAIR [Suspect]
     Indication: HYPERSENSITIVITY
  4. METOPROLOL [Suspect]
     Dosage: 50 MG, UNKNOWN
     Route: 048
  5. LOPRESSOR [Suspect]
     Dosage: 50 MG, BID (HALF TABLET OF 100 MG)
     Route: 048
  6. VITAMIN B COMPLEX [Concomitant]
     Dosage: 50 MG, BID
  7. ALLEGRA [Concomitant]
     Dosage: 60 MG, QD
     Route: 048

REACTIONS (3)
  - Wrong technique in drug usage process [Unknown]
  - Hypersensitivity [Unknown]
  - Asthma [Unknown]
